FAERS Safety Report 5972904-X (Version None)
Quarter: 2008Q4

REPORT INFORMATION
  Report Type: 
  Country: None (occurrence: None)
  Receive Date: 20081201
  Receipt Date: 20081119
  Transmission Date: 20090506
  Serious: Yes (Hospitalization)
  Sender: FDA-Public Use
  Company Number: PHHY2008JP29184

PATIENT
  Age: 84 Year
  Sex: Female

DRUGS (2)
  1. EXJADE [Suspect]
     Indication: IRON OVERLOAD
     Dosage: 500 MG/DAY
     Route: 048
     Dates: start: 20080702, end: 20080730
  2. NEORAL [Concomitant]
     Dosage: 50 MG
     Route: 048

REACTIONS (2)
  - BLOOD CREATININE INCREASED [None]
  - HEAT ILLNESS [None]
